FAERS Safety Report 7341605-8 (Version None)
Quarter: 2011Q1

REPORT INFORMATION
  Report Type: 
  Country: None (occurrence: None)
  Receive Date: 20110301
  Receipt Date: 20110217
  Transmission Date: 20110831
  Serious: Yes (Disabling)
  Sender: FDA-Public Use
  Company Number: FR-1185056

PATIENT
  Age: 72 Year
  Sex: Female

DRUGS (2)
  1. AZOPT [Suspect]
     Dosage: OPHTHALMIC
     Route: 047
  2. BIMATOPROST AND TIMOLOL MALEATE [Concomitant]

REACTIONS (1)
  - AMNESIA [None]
